FAERS Safety Report 8247982-8 (Version None)
Quarter: 2012Q1

REPORT INFORMATION
  Report Type: 
  Country: None (occurrence: None)
  Receive Date: 20120330
  Receipt Date: 20120323
  Transmission Date: 20120608
  Serious: Yes (Hospitalization, Other)
  Sender: FDA-Public Use
  Company Number: US-ACTELION-A-US2012-60003

PATIENT

DRUGS (20)
  1. ACCUPRIL [Concomitant]
  2. PREMARIN [Concomitant]
  3. METAXALONE [Concomitant]
  4. FLEXERIL [Concomitant]
  5. LASIX [Concomitant]
  6. ADCIRCA [Concomitant]
  7. HYDROXYCHLOROQUINE SULFATE [Concomitant]
  8. AZATHIOPRINE [Concomitant]
  9. ADVAIR DISKUS 100/50 [Concomitant]
  10. NEXIUM [Concomitant]
  11. PREDNISONE TAB [Concomitant]
  12. MULTI-VITAMIN [Concomitant]
  13. HYDROCODONE BITARTRATE [Concomitant]
  14. EPOPROSTENOL SODIUM [Suspect]
     Indication: PULMONARY ARTERIAL HYPERTENSION
     Dosage: 46 NG/KG, PER MIN
     Route: 042
     Dates: start: 20101005
  15. SINGULAIR [Concomitant]
  16. RECLAST [Concomitant]
  17. OXYCONTIN [Concomitant]
  18. TRACLEER [Suspect]
     Indication: PULMONARY ARTERIAL HYPERTENSION
     Dosage: 125 MG, BID
     Route: 048
     Dates: start: 20030211
  19. CALCIUM CARBONATE [Concomitant]
  20. BACTRIM DS [Concomitant]

REACTIONS (4)
  - FALL [None]
  - OPEN REDUCTION OF FRACTURE [None]
  - HIP FRACTURE [None]
  - ANAEMIA [None]
